FAERS Safety Report 4523362-3 (Version None)
Quarter: 2004Q4

REPORT INFORMATION
  Report Type: 
  Country: None (occurrence: None)
  Receive Date: 20041210
  Receipt Date: 20041117
  Transmission Date: 20050328
  Serious: Yes (Other)
  Sender: FDA-Public Use
  Company Number: CH-MERCK-0411CHE00036

PATIENT
  Age: 23 Month
  Sex: Male
  Weight: 6 kg

DRUGS (1)
  1. SINGULAIR [Suspect]
     Indication: BRONCHIAL OBSTRUCTION
     Route: 048
     Dates: start: 20031201, end: 20041101

REACTIONS (1)
  - EPILEPSY [None]
